FAERS Safety Report 22147062 (Version 1)
Quarter: 2023Q1

REPORT INFORMATION
  Report Type: Spontaneous
  Country: US (occurrence: US)
  Receive Date: 20230328
  Receipt Date: 20230328
  Transmission Date: 20230418
  Serious: No
  Sender: FDA-Public Use
  Company Number: US-drreddys-SPO/USA/23/0161014

PATIENT
  Age: 36 Year
  Sex: Female

DRUGS (1)
  1. ACCUTANE [Suspect]
     Active Substance: ISOTRETINOIN
     Indication: Acne
     Dosage: RMA ISSUE DATES: 02 NOVEMBER 2022 09:35:43 AM, 06 DECEMBER 2022 04:54:34 PM, 06 JANUARY 2023 09:45:3

REACTIONS (1)
  - Visual impairment [Unknown]
